FAERS Safety Report 9542257 (Version 1)
Quarter: 2013Q3

REPORT INFORMATION
  Report Type: Spontaneous
  Country: BR (occurrence: BR)
  Receive Date: 20130923
  Receipt Date: 20130923
  Transmission Date: 20140515
  Serious: Yes (Other)
  Sender: FDA-Public Use
  Company Number: BR-PFIZER INC-2013269572

PATIENT
  Age: 70 Year
  Sex: Female
  Weight: 78 kg

DRUGS (4)
  1. CELEBRA [Suspect]
     Dosage: UNK
     Route: 048
     Dates: start: 20100917
  2. ANGIPRESS [Concomitant]
     Dosage: UNK
  3. CORUS [Concomitant]
     Dosage: UNK
  4. PURAN T4 [Concomitant]
     Dosage: UNK

REACTIONS (4)
  - Arthropathy [Unknown]
  - Fall [Unknown]
  - Joint injury [Unknown]
  - Arthralgia [Unknown]
